FAERS Safety Report 14530103 (Version 1)
Quarter: 2018Q1

REPORT INFORMATION
  Report Type: Other
  Country: FR (occurrence: FR)
  Receive Date: 20180214
  Receipt Date: 20180214
  Transmission Date: 20180509
  Serious: Yes (Hospitalization)
  Sender: FDA-Public Use
  Company Number: FR-GLENMARK PHARMACEUTICALS-2018GMK031824

PATIENT

DRUGS (2)
  1. DEPAKOTE [Interacting]
     Active Substance: DIVALPROEX SODIUM
     Indication: DEPRESSION
     Dosage: 2 DF, UNK
     Route: 048
     Dates: start: 2017
  2. LAMOTRIGINE. [Suspect]
     Active Substance: LAMOTRIGINE
     Indication: PRODUCT USED FOR UNKNOWN INDICATION
     Dosage: 12.5 MG, UNK
     Route: 048
     Dates: start: 20171215, end: 20171219

REACTIONS (4)
  - Balance disorder [Recovered/Resolved]
  - Cerebellar syndrome [Recovered/Resolved]
  - Dysarthria [Recovered/Resolved]
  - Somnolence [Recovered/Resolved]

NARRATIVE: CASE EVENT DATE: 20171219
